FAERS Safety Report 7766960-6 (Version None)
Quarter: 2011Q3

REPORT INFORMATION
  Report Type: 
  Country: None (occurrence: None)
  Receive Date: 20110922
  Receipt Date: 20110912
  Transmission Date: 20111222
  Serious: Yes (Hospitalization)
  Sender: FDA-Public Use
  Company Number: IL-UCBSA-041132

PATIENT
  Sex: Female

DRUGS (9)
  1. SAXAGLIPTIN/PLACEBO [Suspect]
     Indication: TYPE 2 DIABETES MELLITUS
     Dates: start: 20100812, end: 20110310
  2. DIURETICS [Concomitant]
  3. ANGIOTENSIN RECEPTOR BLOCKER [Concomitant]
  4. HYPERTENSION AGENT [Concomitant]
  5. APIDRA [Suspect]
     Indication: TYPE 2 DIABETES MELLITUS
     Dosage: 14 IU
  6. ZAROXOLYN [Suspect]
     Dates: start: 20101201
  7. STATIN [Concomitant]
  8. LANTUS [Suspect]
     Indication: TYPE 2 DIABETES MELLITUS
     Dosage: 21 IU
  9. CALCIUM ANTAGONIST [Concomitant]

REACTIONS (2)
  - HYPONATRAEMIA [None]
  - BRONCHITIS [None]
